FAERS Safety Report 4873617-8 (Version None)
Quarter: 2005Q4

REPORT INFORMATION
  Report Type: 
  Country: None (occurrence: None)
  Receive Date: 20051201
  Receipt Date: 20050823
  Transmission Date: 20060501
  Serious: No
  Sender: FDA-Public Use
  Company Number: 2005PV001492

PATIENT
  Age: 67 Year
  Sex: Male
  Weight: 90.7194 kg

DRUGS (5)
  1. BYETTA [Suspect]
     Indication: DIABETES MELLITUS NON-INSULIN-DEPENDENT
     Dosage: 5 MCG; BID; SC
     Route: 058
     Dates: start: 20050820, end: 20050910
  2. GLIPIZIDE [Concomitant]
  3. ACIPHEX [Concomitant]
  4. METFORMIN [Concomitant]
  5. AVANDIA [Concomitant]

REACTIONS (3)
  - DIARRHOEA [None]
  - INJECTION SITE PAIN [None]
  - URTICARIA [None]
